FAERS Safety Report 7891030-6 (Version None)
Quarter: 2011Q4

REPORT INFORMATION
  Report Type: 
  Country: None (occurrence: None)
  Receive Date: 20111103
  Receipt Date: 20110728
  Transmission Date: 20120403
  Serious: Yes (Other)
  Sender: FDA-Public Use
  Company Number: US-AMGEN-USASP2011038324

PATIENT
  Age: 75 Year
  Sex: Male

DRUGS (2)
  1. ENBREL [Suspect]
     Indication: PSORIATIC ARTHROPATHY
     Dosage: 50 MG, QWK
     Dates: start: 20070220
  2. ENBREL [Suspect]
     Indication: PSORIASIS

REACTIONS (3)
  - ERYTHEMA [None]
  - DRY SKIN [None]
  - BASAL CELL CARCINOMA [None]
